FAERS Safety Report 7347306-4 (Version None)
Quarter: 2011Q1

REPORT INFORMATION
  Report Type: 
  Country: None (occurrence: None)
  Receive Date: 20110302
  Receipt Date: 20110214
  Transmission Date: 20110831
  Serious: Yes (Other)
  Sender: FDA-Public Use
  Company Number: 2011SP002572

PATIENT
  Sex: Female
  Weight: 90.7194 kg

DRUGS (19)
  1. SERTRALINE HYDROCHLORIDE [Concomitant]
  2. MOTRIN [Concomitant]
  3. MYLANTA [Concomitant]
  4. MAGNESIUM [Concomitant]
  5. CYCLOBENZAPRINE HCL [Concomitant]
  6. PREMARIN [Concomitant]
  7. MILK THISTLE [Concomitant]
  8. TRAZODONE HCL [Concomitant]
  9. LISINOPRIL [Concomitant]
  10. ZINC [Concomitant]
  11. OMEPRAZOLE [Concomitant]
  12. MULTI-VITAMIN [Concomitant]
  13. LOVAZA [Concomitant]
  14. VITAMIN E [Concomitant]
  15. PEG-INTRON [Suspect]
     Indication: HEPATITIS
     Dates: start: 20101022
  16. RIBASPHERE [Suspect]
     Indication: HEPATITIS
  17. ASCORBIC ACID [Concomitant]
  18. ASPIRIN [Concomitant]
  19. ZOLOFT [Concomitant]

REACTIONS (8)
  - SPINAL FUSION SURGERY [None]
  - MUSCULAR WEAKNESS [None]
  - PALPITATIONS [None]
  - PAIN IN EXTREMITY [None]
  - HAEMOGLOBIN DECREASED [None]
  - DYSPNOEA [None]
  - FATIGUE [None]
  - BLOOD PRESSURE DIASTOLIC DECREASED [None]
